FAERS Safety Report 23142072 (Version 1)
Quarter: 2023Q4

REPORT INFORMATION
  Report Type: Spontaneous
  Country: LU (occurrence: LU)
  Receive Date: 20231103
  Receipt Date: 20231103
  Transmission Date: 20240110
  Serious: Yes (Life-Threatening, Other)
  Sender: FDA-Public Use
  Company Number: LU-PIRAMAL CRITICAL CARE LIMITED-2023-PPL-000514

PATIENT

DRUGS (7)
  1. SEVOFLURANE [Suspect]
     Active Substance: SEVOFLURANE
     Indication: Induction of anaesthesia
     Dosage: 1 DOSAGE FORM
     Dates: start: 20231018, end: 20231018
  2. ROCURONIUM BROMIDE [Suspect]
     Active Substance: ROCURONIUM BROMIDE
     Indication: Induction of anaesthesia
     Dosage: 1 DOSAGE FORM
     Route: 042
     Dates: start: 20231018, end: 20231018
  3. PROPOFOL [Suspect]
     Active Substance: PROPOFOL
     Indication: Induction of anaesthesia
     Dosage: 1 DOSAGE FORM
     Route: 042
     Dates: start: 20231018, end: 20231018
  4. REMIFENTANIL [Suspect]
     Active Substance: REMIFENTANIL
     Indication: Induction of anaesthesia
     Dosage: 1 DOSAGE FORM
     Route: 042
     Dates: start: 20231018, end: 20231018
  5. KETAMINE [Suspect]
     Active Substance: KETAMINE
     Indication: Induction of anaesthesia
     Dosage: 1 DOSAGE FORM
     Route: 042
     Dates: start: 20231018, end: 20231018
  6. LIDOCAINE [Suspect]
     Active Substance: LIDOCAINE
     Indication: Induction of anaesthesia
     Dosage: 1 DOSAGE FORM
     Route: 042
     Dates: start: 20231018, end: 20231018
  7. AUGMENTIN [Suspect]
     Active Substance: AMOXICILLIN\CLAVULANATE POTASSIUM
     Indication: Antibiotic prophylaxis
     Dosage: 1 DOSAGE FORM
     Route: 042
     Dates: start: 20231018, end: 20231018

REACTIONS (1)
  - Anaphylactic shock [Recovered/Resolved]

NARRATIVE: CASE EVENT DATE: 20231018
